FAERS Safety Report 23859444 (Version 1)
Quarter: 2024Q2

REPORT INFORMATION
  Report Type: Spontaneous
  Country: US (occurrence: US)
  Receive Date: 20240515
  Receipt Date: 20240515
  Transmission Date: 20240716
  Serious: No
  Sender: FDA-Public Use
  Company Number: US-SA-SAC20240501001589

PATIENT

DRUGS (1)
  1. LARONIDASE [Suspect]
     Active Substance: LARONIDASE
     Indication: Product used for unknown indication
     Route: 065

REACTIONS (1)
  - Drug specific antibody present [Unknown]

NARRATIVE: CASE EVENT DATE: 20240417
